FAERS Safety Report 9082633 (Version 1)
Quarter: 2013Q1

REPORT INFORMATION
  Report Type: Report from Study
  Country: US (occurrence: US)
  Receive Date: 20130130
  Receipt Date: 20130130
  Transmission Date: 20140127
  Serious: No
  Sender: FDA-Public Use
  Company Number: US-ABBOTT-12P-163-0965300-00

PATIENT
  Age: 50 Year
  Sex: Female

DRUGS (27)
  1. HUMIRA 40 MG/0.8 ML PEN [Suspect]
     Indication: CROHN^S DISEASE
     Dosage: LOADING DOSE
     Dates: start: 20120731, end: 20120731
  2. HUMIRA 40 MG/0.8 ML PEN [Suspect]
     Dates: start: 20120814
  3. MORPHINE [Concomitant]
     Indication: PAIN
     Dosage: EXTENDED RELEASE
  4. OXYCODONE [Concomitant]
     Indication: ARTHRALGIA
  5. SOMA [Concomitant]
     Indication: PAIN
  6. GABAPENTIN [Concomitant]
     Indication: ARTHRITIS
     Dosage: 2 CAPS IN MORNING, 3 CAPS IN EVENING
  7. OMEPRAZOLE [Concomitant]
     Indication: GASTRIC DISORDER
     Dosage: EVERY MORNING
  8. ASACOL [Concomitant]
     Indication: GASTRIC DISORDER
     Dosage: 2 THREE TIMES A DAY
  9. LOVASTATIN [Concomitant]
     Indication: BLOOD CHOLESTEROL
  10. ACYCLOVIR [Concomitant]
     Indication: HERPES SIMPLEX
  11. TRAZODONE [Concomitant]
     Indication: INSOMNIA
     Dosage: IN THE EVENING
  12. BUSPAR [Concomitant]
     Indication: ANXIETY
  13. AZITHROMYCIN [Concomitant]
     Indication: GASTRIC DISORDER
  14. ZYRTEC [Concomitant]
     Indication: HYPERSENSITIVITY
  15. GENERIC BENADRYL [Concomitant]
     Indication: PRODUCT USED FOR UNKNOWN INDICATION
  16. PROGESTERONE COMPOUND CREAM [Concomitant]
     Indication: PRODUCT USED FOR UNKNOWN INDICATION
     Dosage: DAILY
  17. CYMBALTA [Concomitant]
     Indication: PAIN
     Dosage: IN THE EVENING
  18. VOLTAREN [Concomitant]
     Indication: MYALGIA
     Dosage: GEL
  19. EPIPEN [Concomitant]
     Indication: HYPERSENSITIVITY
  20. POLYETHYLENE GLYCOL [Concomitant]
     Indication: CONSTIPATION PROPHYLAXIS
  21. MAGNESIUM COMPOUNDS [Concomitant]
     Indication: PRODUCT USED FOR UNKNOWN INDICATION
  22. CALCIUM+VIT D [Concomitant]
     Indication: PRODUCT USED FOR UNKNOWN INDICATION
  23. PROBIOTIC [Concomitant]
     Indication: PRODUCT USED FOR UNKNOWN INDICATION
  24. ENZYME [Concomitant]
     Indication: DYSPEPSIA
     Dosage: WHEN PATIENT EATS
  25. FISH OIL [Concomitant]
     Indication: PRODUCT USED FOR UNKNOWN INDICATION
  26. VIT D 3 [Concomitant]
     Indication: PRODUCT USED FOR UNKNOWN INDICATION
  27. ACETYL L CARNITINE ALPHA LIPOIC ACID [Concomitant]
     Indication: PRODUCT USED FOR UNKNOWN INDICATION
     Dosage: 500/200MG

REACTIONS (3)
  - Injection site pain [Recovered/Resolved]
  - Injection site reaction [Not Recovered/Not Resolved]
  - Injection site pruritus [Not Recovered/Not Resolved]
